FAERS Safety Report 20736816 (Version 1)
Quarter: 2022Q2

REPORT INFORMATION
  Report Type: Spontaneous
  Country: US (occurrence: US)
  Receive Date: 20220421
  Receipt Date: 20220421
  Transmission Date: 20220721
  Serious: No
  Sender: FDA-Public Use
  Company Number: US-Kiniksa Pharmaceuticals Ltd.-2022KPU000080

PATIENT

DRUGS (3)
  1. ARCALYST [Suspect]
     Active Substance: RILONACEPT
     Indication: Juvenile idiopathic arthritis
     Route: 058
     Dates: start: 202109
  2. ARCALYST [Suspect]
     Active Substance: RILONACEPT
     Indication: Juvenile idiopathic arthritis
  3. NAPROXEN [Concomitant]
     Active Substance: NAPROXEN
     Indication: Pain

REACTIONS (2)
  - Pain [Unknown]
  - Off label use [Unknown]
